FAERS Safety Report 21714748 (Version 1)
Quarter: 2022Q4

REPORT INFORMATION
  Report Type: Spontaneous
  Country: US (occurrence: None)
  Receive Date: 20221209
  Receipt Date: 20221209
  Transmission Date: 20230113
  Serious: Yes (Hospitalization)
  Sender: FDA-Public Use
  Company Number: None

PATIENT
  Age: 63 Year
  Sex: Female
  Weight: 70.2 kg

DRUGS (27)
  1. MAVYRET [Suspect]
     Active Substance: GLECAPREVIR\PIBRENTASVIR
     Indication: Hepatitis C
     Dosage: FREQUENCY : DAILY;?
     Route: 048
     Dates: start: 20200219, end: 20200514
  2. FERROUS SULFATE [Concomitant]
     Active Substance: FERROUS SULFATE
  3. FOLIC ACID [Concomitant]
     Active Substance: FOLIC ACID
  4. FUROSEMIDE [Concomitant]
     Active Substance: FUROSEMIDE
  5. HEPARIN [Concomitant]
     Active Substance: HEPARIN SODIUM
  6. LEVALBUTEROL [Concomitant]
     Active Substance: LEVALBUTEROL
  7. MAGNESIUM OXIDE [Concomitant]
     Active Substance: MAGNESIUM OXIDE
  8. METOCLOPRAMIDE [Concomitant]
     Active Substance: METOCLOPRAMIDE
  9. VITAMINS [Concomitant]
     Active Substance: VITAMINS
  10. MYCOPHENOLATE MOFETIL [Concomitant]
     Active Substance: MYCOPHENOLATE MOFETIL
  11. PANTOPRAZOLE [Concomitant]
     Active Substance: PANTOPRAZOLE
  12. LIQUITEARS [Concomitant]
     Active Substance: POLYVINYL ALCOHOL
  13. REFRESH CLASSIC [Concomitant]
     Active Substance: POLYVINYL ALCOHOL\POVIDONE
  14. PREDNISONE [Concomitant]
     Active Substance: PREDNISONE
  15. ROSUVASTATIN [Concomitant]
     Active Substance: ROSUVASTATIN
  16. SODIUM CHLORIDE [Concomitant]
     Active Substance: SODIUM CHLORIDE
  17. TACROLIMUS [Concomitant]
     Active Substance: TACROLIMUS
  18. TRAMADOL [Concomitant]
     Active Substance: TRAMADOL
  19. VALGANCICLOVIR [Concomitant]
     Active Substance: VALGANCICLOVIR
  20. ALENDRONATE [Concomitant]
     Active Substance: ALENDRONATE SODIUM
  21. AMIODARONE [Concomitant]
     Active Substance: AMIODARONE
  22. ASPIRIN [Concomitant]
     Active Substance: ASPIRIN
  23. CALCIUM CITRATE [Concomitant]
     Active Substance: CALCIUM CITRATE
  24. VITAMIN D3 [Concomitant]
     Active Substance: CHOLECALCIFEROL
  25. CEFEPIME [Concomitant]
     Active Substance: CEFEPIME HYDROCHLORIDE
  26. DAPSONE [Concomitant]
     Active Substance: DAPSONE
  27. ERGOCALCIPHEROL [Concomitant]

REACTIONS (7)
  - Dyspnoea [None]
  - Palpitations [None]
  - Leukopenia [None]
  - Neutropenia [None]
  - Forced expiratory volume decreased [None]
  - Therapy interrupted [None]
  - Acute kidney injury [None]

NARRATIVE: CASE EVENT DATE: 20200501
